FAERS Safety Report 4623907-9 (Version None)
Quarter: 2005Q1

REPORT INFORMATION
  Report Type: 
  Country: None (occurrence: None)
  Receive Date: 20050331
  Receipt Date: 20050224
  Transmission Date: 20050727
  Serious: Yes (Hospitalization)
  Sender: FDA-Public Use
  Company Number: DE-ROCHE-396493

PATIENT
  Age: 66 Year
  Sex: Female
  Weight: 85.6 kg

DRUGS (1)
  1. XENICAL [Suspect]
     Route: 048
     Dates: start: 20040915, end: 20050115

REACTIONS (6)
  - ANGINA PECTORIS [None]
  - ARTERIOSPASM CORONARY [None]
  - BLOOD PRESSURE SYSTOLIC INCREASED [None]
  - BRONCHOPNEUMONIA [None]
  - CORONARY ARTERY DISEASE [None]
  - CORONARY ARTERY STENOSIS [None]
